FAERS Safety Report 4684653-9 (Version None)
Quarter: 2005Q2

REPORT INFORMATION
  Report Type: 
  Country: None (occurrence: None)
  Receive Date: 20050603
  Receipt Date: 20050520
  Transmission Date: 20051028
  Serious: Yes (Hospitalization)
  Sender: FDA-Public Use
  Company Number: CERZ-10887

PATIENT
  Age: 6 Year
  Sex: Female
  Weight: 8 kg

DRUGS (16)
  1. CEREZYME [Suspect]
     Indication: GAUCHER'S DISEASE
     Dosage: 600 UNITS Q2WS IV
     Route: 042
     Dates: start: 20010406
  2. CEREZYME [Suspect]
  3. CEREZYME [Suspect]
  4. CEREZYME [Suspect]
  5. CEREZYME [Suspect]
     Indication: GAUCHER'S DISEASE
     Dosage: 400 UNITS Q2WKS IV
     Route: 042
     Dates: start: 19990118
  6. CEREZYME [Suspect]
  7. VALPROATE SODIUM [Concomitant]
  8. CLONAZEPAM [Concomitant]
  9. FAMOTIDINE [Concomitant]
  10. DOMPERIDONE [Concomitant]
  11. DIAZEPAM [Concomitant]
  12. DANTROLENE SODIUM [Concomitant]
  13. ZONISAMIDE [Concomitant]
  14. FUROSEMIDE [Concomitant]
  15. SPIRONOLACTONE [Concomitant]
  16. ANTIBIOTICS RESISTANT LACTIC ACID BACTERIAE [Concomitant]

REACTIONS (3)
  - DISEASE RECURRENCE [None]
  - PNEUMONIA [None]
  - URINARY TRACT INFECTION [None]
